FAERS Safety Report 7086343-4 (Version None)
Quarter: 2010Q4

REPORT INFORMATION
  Report Type: 
  Country: None (occurrence: None)
  Receive Date: 20101105
  Receipt Date: 20101026
  Transmission Date: 20110411
  Serious: Yes (Hospitalization)
  Sender: FDA-Public Use
  Company Number: SE-NAPPMUNDI-GBR-2010-0007284

PATIENT
  Sex: Male

DRUGS (4)
  1. OXYCONTIN [Suspect]
     Indication: PAIN
     Dosage: UNK
     Route: 048
     Dates: start: 20100701
  2. COZAAR [Suspect]
     Indication: PAIN
     Dosage: 100MG/25MG
     Route: 065
  3. DETRUSITOL [Concomitant]
     Route: 065
  4. TOLTERODINE TARTRATE [Concomitant]
     Route: 065

REACTIONS (2)
  - BLOOD CREATININE INCREASED [None]
  - CONSTIPATION [None]
